FAERS Safety Report 10584471 (Version 1)
Quarter: 2014Q4

REPORT INFORMATION
  Report Type: Spontaneous
  Country: US (occurrence: None)
  Receive Date: 20141113
  Receipt Date: 20141113
  Transmission Date: 20150529
  Serious: Yes (Other)
  Sender: FDA-Public Use
  Company Number: None

PATIENT
  Age: 61 Year
  Sex: Female
  Weight: 88.45 kg

DRUGS (2)
  1. ALPRAZOLAM. [Suspect]
     Active Substance: ALPRAZOLAM
     Indication: ANXIETY
     Dosage: 1/2 TAB AM + PM, 1 OR 2 THREE TIMES DAILY TAKEN BY MOUTH
     Route: 048
     Dates: start: 20141106, end: 20141111
  2. ALPRAZOLAM. [Suspect]
     Active Substance: ALPRAZOLAM
     Indication: INSOMNIA
     Dosage: 1/2 TAB AM + PM, 1 OR 2 THREE TIMES DAILY TAKEN BY MOUTH
     Route: 048
     Dates: start: 20141106, end: 20141111

REACTIONS (12)
  - Anxiety [None]
  - Insomnia [None]
  - Product substitution issue [None]
  - Drug ineffective [None]
  - Product quality issue [None]
  - Irritability [None]
  - Product odour abnormal [None]
  - Thinking abnormal [None]
  - Swelling [None]
  - Dyspnoea [None]
  - Dizziness [None]
  - Nausea [None]

NARRATIVE: CASE EVENT DATE: 20141110
